FAERS Safety Report 25435311 (Version 2)
Quarter: 2025Q2

REPORT INFORMATION
  Report Type: Report from Study
  Country: US (occurrence: US)
  Receive Date: 20250613
  Receipt Date: 20250625
  Transmission Date: 20250716
  Serious: Yes (Hospitalization, Other)
  Sender: ABBVIE
  Company Number: US-ABBVIE-6321566

PATIENT
  Age: 69 Year
  Sex: Female

DRUGS (1)
  1. BOTOX [Suspect]
     Active Substance: ONABOTULINUMTOXINA
     Indication: Product used for unknown indication
     Route: 065
     Dates: start: 2013, end: 2013

REACTIONS (15)
  - Narcolepsy [Not Recovered/Not Resolved]
  - Gastric ulcer [Unknown]
  - Arthritis [Not Recovered/Not Resolved]
  - Hip arthroplasty [Recovered/Resolved]
  - Back disorder [Not Recovered/Not Resolved]
  - Chronic obstructive pulmonary disease [Not Recovered/Not Resolved]
  - Urosepsis [Recovered/Resolved]
  - Fall [Recovered/Resolved]
  - Cholecystectomy [Unknown]
  - Walking aid user [Unknown]
  - Meralgia paraesthetica [Unknown]
  - Haemoglobin decreased [Recovering/Resolving]
  - Fall [Recovered/Resolved]
  - Pneumonia [Recovered/Resolved]
  - Mobility decreased [Unknown]

NARRATIVE: CASE EVENT DATE: 20240101
